FAERS Safety Report 4353649-9 (Version None)
Quarter: 2004Q2

REPORT INFORMATION
  Report Type: 
  Country: None (occurrence: None)
  Receive Date: 20040430
  Receipt Date: 20040422
  Transmission Date: 20050107
  Serious: Yes (Hospitalization)
  Sender: FDA-Public Use
  Company Number: US-SHR-04-023113

PATIENT
  Age: 57 Year
  Sex: Female
  Weight: 83.4 kg

DRUGS (6)
  1. BETASERON [Suspect]
     Indication: MULTIPLE SCLEROSIS RELAPSE
     Dosage: SEE IMAGE
     Route: 059
     Dates: start: 20030601
  2. DIOVAN [Concomitant]
  3. NORVASC [Concomitant]
  4. AMLODIPINE BESYLATE [Concomitant]
  5. VIOXX [Concomitant]
  6. ZYRTEC-D (PSEUDOEPHEDRINE HYDROCHLORIDE) [Concomitant]

REACTIONS (2)
  - LUNG NEOPLASM [None]
  - SARCOMA [None]
